FAERS Safety Report 5169764-6 (Version None)
Quarter: 2006Q4

REPORT INFORMATION
  Report Type: 
  Country: None (occurrence: None)
  Receive Date: 20061201
  Receipt Date: 20061128
  Transmission Date: 20070319
  Serious: Yes (Death, Hospitalization)
  Sender: FDA-Public Use
  Company Number: E2020-00723-SPO-US

PATIENT
  Age: 83 Year
  Sex: Female

DRUGS (10)
  1. ARICEPT [Suspect]
     Indication: DEMENTIA ALZHEIMER'S TYPE
     Dosage: SEE IMAGE
     Route: 048
     Dates: start: 20040101, end: 20060901
  2. ARICEPT [Suspect]
     Indication: DEMENTIA ALZHEIMER'S TYPE
     Dosage: SEE IMAGE
     Route: 048
     Dates: start: 20060901, end: 20061102
  3. NAMENDA [Suspect]
     Indication: DEMENTIA ALZHEIMER'S TYPE
     Dosage: SEE IMAGE
     Route: 048
     Dates: start: 20040101, end: 20040101
  4. NAMENDA [Suspect]
     Indication: DEMENTIA ALZHEIMER'S TYPE
     Dosage: SEE IMAGE
     Route: 048
     Dates: start: 20040101, end: 20040101
  5. NAMENDA [Suspect]
     Indication: DEMENTIA ALZHEIMER'S TYPE
     Dosage: SEE IMAGE
     Route: 048
     Dates: start: 20040101, end: 20040101
  6. NAMENDA [Suspect]
     Indication: DEMENTIA ALZHEIMER'S TYPE
     Dosage: SEE IMAGE
     Route: 048
     Dates: start: 20040101, end: 20060901
  7. NAMENDA [Suspect]
     Indication: DEMENTIA ALZHEIMER'S TYPE
     Dosage: SEE IMAGE
     Route: 048
     Dates: start: 20060901, end: 20061102
  8. ASPIRIN [Concomitant]
  9. ALAVIDE (IRBESARTAN/HYDROCHLOROTHIAZIDE) [Concomitant]
  10. SYNTHROID [Concomitant]

REACTIONS (5)
  - BLOOD PRESSURE DECREASED [None]
  - DIALYSIS [None]
  - HYPERSOMNIA [None]
  - LETHARGY [None]
  - RENAL FAILURE [None]
